FAERS Safety Report 19448518 (Version 1)
Quarter: 2021Q2

REPORT INFORMATION
  Report Type: Spontaneous
  Country: FR (occurrence: FR)
  Receive Date: 20210622
  Receipt Date: 20210622
  Transmission Date: 20210717
  Serious: Yes (Hospitalization)
  Sender: FDA-Public Use
  Company Number: FR-ACCORD-228967

PATIENT
  Age: 69 Year
  Sex: Female
  Weight: 65 kg

DRUGS (5)
  1. ATROPINE. [Concomitant]
     Active Substance: ATROPINE
     Indication: CHEMOTHERAPY SIDE EFFECT PROPHYLAXIS
     Route: 058
     Dates: start: 20210104, end: 20210104
  2. SODIUM LEVOFOLINATE MYLAN [Concomitant]
     Active Substance: LEVOLEUCOVORIN DISODIUM
     Indication: CHEMOTHERAPY SIDE EFFECT PROPHYLAXIS
     Route: 041
     Dates: start: 20210104, end: 20210104
  3. OXALIPLATIN. [Suspect]
     Active Substance: OXALIPLATIN
     Indication: PANCREATIC CARCINOMA
     Route: 041
     Dates: start: 20210104, end: 20210104
  4. ONDANSETRON ACCORD [Concomitant]
     Active Substance: ONDANSETRON
     Indication: CHEMOTHERAPY SIDE EFFECT PROPHYLAXIS
     Route: 040
     Dates: start: 20210104, end: 20210104
  5. MVASI [Concomitant]
     Active Substance: BEVACIZUMAB-AWWB
     Indication: PANCREATIC CARCINOMA
     Route: 041
     Dates: start: 20210104, end: 20210104

REACTIONS (2)
  - Infusion related reaction [Recovered/Resolved]
  - Off label use [Unknown]

NARRATIVE: CASE EVENT DATE: 20210104
